FAERS Safety Report 12145325 (Version 1)
Quarter: 2016Q1

REPORT INFORMATION
  Report Type: Report from Study
  Country: NL (occurrence: NL)
  Receive Date: 20160304
  Receipt Date: 20160304
  Transmission Date: 20160526
  Serious: Yes (Hospitalization)
  Sender: FDA-Public Use
  Company Number: PHHO2013NL020509

PATIENT
  Age: 62 Year
  Sex: Female
  Weight: 60.6 kg

DRUGS (2)
  1. ACETYLSALICYLZUUR [Concomitant]
     Active Substance: ASPIRIN
     Indication: ARTHRALGIA
     Dosage: 80 MG, QID
     Route: 048
     Dates: start: 20131112, end: 20131119
  2. DABRAFENIB [Suspect]
     Active Substance: DABRAFENIB
     Indication: NON-SMALL CELL LUNG CANCER
     Dosage: 150 MG, BID
     Route: 048
     Dates: start: 20130709

REACTIONS (1)
  - Transient ischaemic attack [Recovered/Resolved]

NARRATIVE: CASE EVENT DATE: 20131118
